FAERS Safety Report 19978810 (Version 1)
Quarter: 2021Q4

REPORT INFORMATION
  Report Type: Spontaneous
  Country: US (occurrence: US)
  Receive Date: 20211020
  Receipt Date: 20211020
  Transmission Date: 20220303
  Serious: No
  Sender: FDA-Public Use
  Company Number: US-PFIZER INC-202101073821

PATIENT
  Age: 62 Year
  Sex: Female
  Weight: 71.66 kg

DRUGS (1)
  1. DOXEPIN HYDROCHLORIDE [Suspect]
     Active Substance: DOXEPIN HYDROCHLORIDE
     Dosage: UNK

REACTIONS (4)
  - Intentional overdose [Unknown]
  - Bladder disorder [Unknown]
  - Micturition urgency [Unknown]
  - Dyskinesia [Unknown]
